FAERS Safety Report 4330830-6 (Version None)
Quarter: 2004Q1

REPORT INFORMATION
  Report Type: 
  Country: None (occurrence: None)
  Receive Date: 20040331
  Receipt Date: 20040312
  Transmission Date: 20041129
  Serious: Yes (Life-Threatening, Hospitalization)
  Sender: FDA-Public Use
  Company Number: USA040361891

PATIENT
  Age: 40 Year
  Sex: Male

DRUGS (2)
  1. VANCOMYCIN [Suspect]
     Indication: PROPHYLAXIS
     Dates: start: 20030904, end: 20030917
  2. VANCOMYCIN [Suspect]
     Indication: SURGERY
     Dates: start: 20030904, end: 20030917

REACTIONS (10)
  - BLOOD GLUCOSE DECREASED [None]
  - COMA [None]
  - CONFUSIONAL STATE [None]
  - DIARRHOEA [None]
  - FAECES DISCOLOURED [None]
  - HALLUCINATION [None]
  - PYREXIA [None]
  - RASH [None]
  - RESPIRATORY ARREST [None]
  - STARING [None]
